FAERS Safety Report 6868715-3 (Version None)
Quarter: 2010Q3

REPORT INFORMATION
  Report Type: 
  Country: None (occurrence: None)
  Receive Date: 20100722
  Receipt Date: 20080602
  Transmission Date: 20110219
  Serious: No
  Sender: FDA-Public Use
  Company Number: US-PFIZER INC-2008048920

PATIENT
  Age: 47 Year
  Sex: Female
  Weight: 59.87 kg

DRUGS (1)
  1. CHANTIX [Suspect]
     Indication: SMOKING CESSATION THERAPY
     Route: 048
     Dates: start: 20080519

REACTIONS (5)
  - EYE DISORDER [None]
  - EYE IRRITATION [None]
  - EYE PRURITUS [None]
  - OCULAR HYPERAEMIA [None]
  - VISION BLURRED [None]
